FAERS Safety Report 6712135-9 (Version None)
Quarter: 2010Q2

REPORT INFORMATION
  Report Type: 
  Country: None (occurrence: None)
  Receive Date: 20100505
  Receipt Date: 20100422
  Transmission Date: 20101027
  Serious: Yes (Hospitalization, Other)
  Sender: FDA-Public Use
  Company Number: US-ELI_LILLY_AND_COMPANY-US201004007126

PATIENT
  Sex: Female

DRUGS (6)
  1. FORTEO [Suspect]
     Indication: OSTEOPOROSIS
     Dosage: 20 UG, DAILY (1/D)
     Dates: start: 20090301, end: 20100328
  2. PLAQUENIL /00072601/ [Concomitant]
  3. PROTONIX /01263201/ [Concomitant]
  4. FISH OIL [Concomitant]
  5. CALCIUM [Concomitant]
  6. ANTIHYPERTENSIVES [Concomitant]

REACTIONS (7)
  - CEREBROVASCULAR ACCIDENT [None]
  - FATIGUE [None]
  - INFECTION [None]
  - MALAISE [None]
  - MONOPARESIS [None]
  - RHEUMATOID ARTHRITIS [None]
  - SPEECH DISORDER [None]
